FAERS Safety Report 19975405 (Version 1)
Quarter: 2021Q4

REPORT INFORMATION
  Report Type: Spontaneous
  Country: US (occurrence: US)
  Receive Date: 20211021
  Receipt Date: 20211021
  Transmission Date: 20220303
  Serious: No
  Sender: FDA-Public Use
  Company Number: US-GLAXOSMITHKLINE-USCH2021071355

PATIENT
  Sex: Male
  Weight: 154.2 kg

DRUGS (2)
  1. ALLI [Suspect]
     Active Substance: ORLISTAT
     Indication: Weight loss diet
     Dosage: 1 DF, TID
  2. ALLI [Suspect]
     Active Substance: ORLISTAT
     Dosage: 1 DF, TID

REACTIONS (1)
  - Therapeutic product effect incomplete [Recovered/Resolved]
